FAERS Safety Report 5198070-9 (Version None)
Quarter: 2007Q1

REPORT INFORMATION
  Report Type: 
  Country: None (occurrence: None)
  Receive Date: 20070104
  Receipt Date: 20061220
  Transmission Date: 20070707
  Serious: Yes (Other)
  Sender: FDA-Public Use
  Company Number: US-ELI_LILLY_AND_COMPANY-US200609003130

PATIENT
  Age: 75 Year
  Sex: Female
  Weight: 68.027 kg

DRUGS (6)
  1. ATORVASTATIN CALCIUM [Concomitant]
     Indication: HYPERLIPIDAEMIA
     Dosage: UNK, UNK
     Dates: start: 20020101
  2. CALCIUM WITH VITAMIN D [Concomitant]
     Indication: OSTEOPOROSIS
     Dosage: UNK, UNK
     Dates: start: 20010101
  3. MULTI-VITAMIN [Concomitant]
  4. FORTEO [Suspect]
     Indication: OSTEOPOROSIS
     Dosage: 20 UG, DAILY (1/D)
     Route: 058
     Dates: start: 20040211, end: 20060601
  5. ALENDRONATE SODIUM [Suspect]
     Indication: OSTEOPOROSIS
     Dosage: 70 MG, WEEKLY (1/W)
     Route: 048
     Dates: start: 20000101, end: 20060207
  6. METHIMAZOLE [Concomitant]
     Indication: HYPERTHYROIDISM
     Dosage: UNK, UNK
     Dates: start: 20021101

REACTIONS (1)
  - GAMMOPATHY [None]
